FAERS Safety Report 9637132 (Version 1)
Quarter: 2013Q4

REPORT INFORMATION
  Report Type: Spontaneous
  Country: US (occurrence: US)
  Receive Date: 20131022
  Receipt Date: 20131022
  Transmission Date: 20140711
  Serious: Yes (Hospitalization)
  Sender: FDA-Public Use
  Company Number: US-ASTRAZENECA-2013SE75847

PATIENT
  Age: 67 Year
  Sex: Female
  Weight: 64 kg

DRUGS (4)
  1. ANASTROZOLE [Suspect]
     Indication: BREAST CANCER FEMALE
     Dosage: ARIMIDEX, 1 MG DAILY
     Route: 048
     Dates: start: 2009, end: 2010
  2. ANASTROZOLE [Suspect]
     Indication: BREAST CANCER FEMALE
     Route: 048
     Dates: start: 2010, end: 20130711
  3. LOVASTATIN [Concomitant]
     Indication: BLOOD CHOLESTEROL ABNORMAL
     Route: 048
  4. METFORMIN [Concomitant]
     Indication: BLOOD GLUCOSE ABNORMAL
     Route: 048

REACTIONS (11)
  - Dizziness [Unknown]
  - Muscular weakness [Unknown]
  - Pain [Unknown]
  - Sinusitis [Unknown]
  - Feeling of body temperature change [Unknown]
  - Mood swings [Unknown]
  - Fatigue [Unknown]
  - Asthenia [Unknown]
  - Spondylitis [Unknown]
  - Anxiety [Unknown]
  - Osteoarthritis [Unknown]
